FAERS Safety Report 8992819 (Version 1)
Quarter: 2013Q1

REPORT INFORMATION
  Report Type: Spontaneous
  Country: US (occurrence: US)
  Receive Date: 20130102
  Receipt Date: 20130102
  Transmission Date: 20140127
  Serious: No
  Sender: FDA-Public Use
  Company Number: US-009507513-1212USA011074

PATIENT
  Age: 93 Year
  Sex: Female

DRUGS (3)
  1. COSOPT [Suspect]
     Indication: GLAUCOMA
     Dosage: 0.5 %, DROP IN EACH EYE, BID
     Route: 047
     Dates: start: 2000
  2. SINGULAIR [Concomitant]
  3. ALPHAGAN [Concomitant]

REACTIONS (3)
  - Dry eye [Recovering/Resolving]
  - Product quality issue [Unknown]
  - Drug dose omission [Unknown]
